FAERS Safety Report 25351624 (Version 1)
Quarter: 2025Q2

REPORT INFORMATION
  Report Type: Spontaneous
  Country: IT (occurrence: IT)
  Receive Date: 20250523
  Receipt Date: 20250523
  Transmission Date: 20250717
  Serious: Yes (Death, Hospitalization, Other)
  Sender: STRIDES
  Company Number: IT-STRIDES ARCOLAB LIMITED-2025SP006261

PATIENT
  Age: 88 Year
  Sex: Female

DRUGS (5)
  1. OLANZAPINE [Suspect]
     Active Substance: OLANZAPINE
     Indication: Restlessness
     Route: 065
  2. MIDAZOLAM [Suspect]
     Active Substance: MIDAZOLAM
     Indication: Sedative therapy
     Route: 065
  3. MIDAZOLAM [Suspect]
     Active Substance: MIDAZOLAM
     Indication: Restlessness
  4. DABIGATRAN [Concomitant]
     Active Substance: DABIGATRAN
     Indication: Anticoagulant therapy
     Route: 048
  5. DABIGATRAN [Concomitant]
     Active Substance: DABIGATRAN
     Indication: Atrial fibrillation

REACTIONS (4)
  - Acute respiratory failure [Fatal]
  - Acidosis [Unknown]
  - Coma [Unknown]
  - Off label use [Unknown]
